FAERS Safety Report 5876517-X (Version None)
Quarter: 2008Q3

REPORT INFORMATION
  Report Type: 
  Country: None (occurrence: None)
  Receive Date: 20080910
  Receipt Date: 20080902
  Transmission Date: 20090109
  Serious: Yes (Hospitalization)
  Sender: FDA-Public Use
  Company Number: B0536325A

PATIENT
  Age: 74 Year
  Sex: Female

DRUGS (6)
  1. AMOXICILLIN [Suspect]
     Indication: BACTERIAL INFECTION
     Dosage: 500MG THREE TIMES PER DAY
     Route: 048
     Dates: start: 20080502, end: 20080530
  2. SEPTRIN FORTE [Suspect]
     Indication: BACTERIAL INFECTION
     Route: 048
     Dates: start: 20080502, end: 20080530
  3. CARVEDILOL [Suspect]
     Indication: DRUG USE FOR UNKNOWN INDICATION
     Dosage: 3.1MG TWICE PER DAY
     Route: 048
  4. CHLORTHALIDONE [Suspect]
     Dosage: 25MG PER DAY
     Route: 048
  5. PARAPRES [Suspect]
     Dosage: 16MG TWICE PER DAY
     Route: 048
  6. SINTROM [Suspect]
     Indication: HEART VALVE REPLACEMENT
     Route: 048

REACTIONS (2)
  - DRUG INTERACTION [None]
  - GINGIVAL BLEEDING [None]
